FAERS Safety Report 6805695-0 (Version None)
Quarter: 2010Q2

REPORT INFORMATION
  Report Type: 
  Country: None (occurrence: None)
  Receive Date: 20100628
  Receipt Date: 20080530
  Transmission Date: 20101027
  Serious: No
  Sender: FDA-Public Use
  Company Number: US-PFIZER INC-2008046590

PATIENT
  Sex: Female

DRUGS (5)
  1. SUTENT [Suspect]
     Indication: RENAL CANCER
     Route: 048
     Dates: start: 20080227
  2. CRESTOR [Concomitant]
  3. SYNTHROID [Concomitant]
  4. LISINOPRIL [Concomitant]
  5. CIPROFLOXACIN [Concomitant]

REACTIONS (2)
  - BLISTER [None]
  - GAIT DISTURBANCE [None]
